FAERS Safety Report 5806228-8 (Version None)
Quarter: 2008Q3

REPORT INFORMATION
  Report Type: 
  Country: None (occurrence: None)
  Receive Date: 20080709
  Receipt Date: 20080709
  Transmission Date: 20090109
  Serious: Yes (Disabling)
  Sender: FDA-Public Use
  Company Number: None

PATIENT
  Sex: Female

DRUGS (4)
  1. XYLOCAINE W/ EPINEPHRENE [Suspect]
     Indication: ROTATOR CUFF SYNDROME
     Dosage: 150 ML 014
     Dates: start: 20040624
  2. LIDOCAINE W/ EPINEPHRINE [Suspect]
     Indication: ARTHROPATHY
     Dosage: 270 ML 5 ML/HR 014
     Dates: start: 20041004, end: 20041006
  3. BREG PAIN PUMP [Concomitant]
  4. RT-ON-Q PAIN BUSTER [Concomitant]

REACTIONS (2)
  - MEDICAL DEVICE IMPLANTATION [None]
  - SHOULDER ARTHROPLASTY [None]
